FAERS Safety Report 7436784-8 (Version None)
Quarter: 2011Q2

REPORT INFORMATION
  Report Type: 
  Country: None (occurrence: None)
  Receive Date: 20110418
  Receipt Date: 20110322
  Transmission Date: 20111010
  Serious: Yes (Life-Threatening)
  Sender: FDA-Public Use
  Company Number: IDA-00516

PATIENT
  Age: 76 Year
  Sex: Female

DRUGS (11)
  1. DURAGESIC-100 [Concomitant]
  2. BISOPROLOL FUMARATE [Suspect]
     Indication: HYPERTENSION
     Dosage: 5 MG QD, ORAL FORMULATION: UNKNOWN
     Route: 048
     Dates: end: 20110308
  3. ASPIRIN [Concomitant]
  4. DIAMICRON (GLICLAZIDE) [Concomitant]
  5. INDERAL [Suspect]
     Indication: ESSENTIAL TREMOR
     Dosage: 10 MG DAILY, ORAL FORMULATION: TABLET
     Route: 048
     Dates: end: 20110308
  6. METFIN (METFORMIN HYDROCHLORIDE) [Concomitant]
  7. AMOXICILLIN AND CLAVULANATE POTASSIUM [Suspect]
     Indication: INFLUENZA
     Dosage: DAILY DOSE: ORAL FORMULATION;
     Route: 048
     Dates: start: 20110306, end: 20110307
  8. AMOXICILLIN AND CLAVULANATE POTASSIUM [Suspect]
     Indication: BRONCHITIS
     Dosage: DAILY DOSE: ORAL FORMULATION;
     Route: 048
     Dates: start: 20110306, end: 20110307
  9. ATACAND [Concomitant]
  10. ALLOPURINOL [Concomitant]
  11. HUMALOG [Concomitant]

REACTIONS (9)
  - CONVULSION [None]
  - INFLUENZA [None]
  - ATRIOVENTRICULAR BLOCK [None]
  - TOXICITY TO VARIOUS AGENTS [None]
  - SINOATRIAL BLOCK [None]
  - FALL [None]
  - BRONCHITIS [None]
  - BUNDLE BRANCH BLOCK LEFT [None]
  - SYNCOPE [None]
